FAERS Safety Report 8778461 (Version 1)
Quarter: 2012Q4

REPORT INFORMATION
  Report Type: 
  Country: FR (occurrence: FR)
  Receive Date: 20120912
  Receipt Date: 20120912
  Transmission Date: 20130627
  Serious: Yes (Hospitalization)
  Sender: FDA-Public Use
  Company Number: FR-VERTEX PHARMACEUTICAL INC.-2012-020950

PATIENT
  Age: 60 Year
  Sex: Male

DRUGS (1)
  1. INCIVO [Suspect]
     Indication: PRODUCT USED FOR UNKNOWN INDICATION
     Dosage: 2 DF, tid
     Route: 048
     Dates: start: 20120519, end: 20120727

REACTIONS (3)
  - Rash pustular [Recovered/Resolved]
  - Toxic skin eruption [Unknown]
  - Dyshidrotic eczema [Unknown]
